FAERS Safety Report 11894773 (Version 1)
Quarter: 2016Q1

REPORT INFORMATION
  Report Type: Spontaneous
  Country: GB (occurrence: GB)
  Receive Date: 20160107
  Receipt Date: 20160107
  Transmission Date: 20160526
  Serious: Yes (Other)
  Sender: FDA-Public Use
  Company Number: GB-JNJFOC-20151221911

PATIENT
  Sex: Female

DRUGS (1)
  1. IBUPROFEN. [Suspect]
     Active Substance: IBUPROFEN
     Indication: BACK PAIN
     Route: 065

REACTIONS (5)
  - Small intestinal haemorrhage [Unknown]
  - Circulatory collapse [Unknown]
  - Blood pressure decreased [Unknown]
  - Apparent death [Unknown]
  - Haemorrhage [Unknown]
